FAERS Safety Report 25728545 (Version 2)
Quarter: 2025Q3

REPORT INFORMATION
  Report Type: Spontaneous
  Country: US (occurrence: US)
  Receive Date: 20250826
  Receipt Date: 20250923
  Transmission Date: 20251021
  Serious: Yes (Other)
  Sender: BRISTOL-MYERS SQUIBB COMPANY
  Company Number: US-BRISTOL-MYERS SQUIBB COMPANY-2025-118435

PATIENT
  Age: 71 Year
  Sex: Female

DRUGS (1)
  1. REVLIMID [Suspect]
     Active Substance: LENALIDOMIDE
     Indication: Follicular lymphoma
     Dosage: QD (FOR 21 DAYS ON 7 DAYS OFF)

REACTIONS (5)
  - Asthenia [Unknown]
  - Rash [Unknown]
  - Back pain [Unknown]
  - Platelet count decreased [Unknown]
  - White blood cell count decreased [Unknown]
